FAERS Safety Report 14726373 (Version 4)
Quarter: 2020Q1

REPORT INFORMATION
  Report Type: Spontaneous
  Country: NO (occurrence: NO)
  Receive Date: 20180406
  Receipt Date: 20200102
  Transmission Date: 20200409
  Serious: Yes (Life-Threatening, Hospitalization, Other)
  Sender: FDA-Public Use
  Company Number: NO-009507513-1803NOR012481

PATIENT
  Age: 37 Year
  Sex: Female

DRUGS (3)
  1. ORGALUTRAN [Suspect]
     Active Substance: GANIRELIX ACETATE
     Dosage: UNK
  2. MENOPUR [Suspect]
     Active Substance: FOLLITROPIN\LUTEINIZING HORMONE
     Indication: HORMONE THERAPY
     Dosage: 75 IU, QD
     Dates: start: 20161003, end: 20161006
  3. PUREGON [FOLLITROPIN BETA] [Suspect]
     Active Substance: FOLLITROPIN
     Indication: HORMONE THERAPY
     Dosage: UNK
     Dates: start: 20161125

REACTIONS (2)
  - Multiple sclerosis relapse [Recovered/Resolved]
  - Maternal exposure before pregnancy [Unknown]

NARRATIVE: CASE EVENT DATE: 20161128
